FAERS Safety Report 8768819 (Version 4)
Quarter: 2013Q1

REPORT INFORMATION
  Report Type: Spontaneous
  Country: US (occurrence: US)
  Receive Date: 20120905
  Receipt Date: 20130111
  Transmission Date: 20140127
  Serious: Yes (Hospitalization, Disabling, Other)
  Sender: FDA-Public Use
  Company Number: US-009507513-1205USA00306

PATIENT
  Sex: 0

DRUGS (4)
  1. FOSAMAX [Suspect]
     Indication: OSTEOPOROSIS
     Dosage: UNK
     Route: 048
     Dates: start: 2003
  2. FOSAMAX [Suspect]
     Dosage: UNK
     Route: 048
     Dates: start: 2002
  3. FOSAMAX PLUS D [Suspect]
     Indication: OSTEOPOROSIS
     Route: 048
  4. FOSAMAX [Suspect]
     Indication: OSTEOPOROSIS
     Route: 048

REACTIONS (41)
  - Femur fracture [Unknown]
  - Closed fracture manipulation [Unknown]
  - Osteoporosis [Unknown]
  - Stress fracture [Unknown]
  - Femur fracture [Unknown]
  - Low turnover osteopathy [Unknown]
  - Hip fracture [Unknown]
  - Osteonecrosis [Unknown]
  - Ulcer haemorrhage [Unknown]
  - Mastectomy [Unknown]
  - Hip arthroplasty [Unknown]
  - Thrombocytopenia [Recovering/Resolving]
  - Breast cancer [Unknown]
  - Fall [Unknown]
  - Implant site reaction [Unknown]
  - Breast prosthesis implantation [Unknown]
  - Depression [Not Recovered/Not Resolved]
  - Anxiety [Not Recovered/Not Resolved]
  - Fear [Not Recovered/Not Resolved]
  - Bronchitis chemical [Unknown]
  - Withdrawal syndrome [Unknown]
  - Intervertebral disc protrusion [Unknown]
  - Muscle strain [Unknown]
  - Migraine [Unknown]
  - Contusion [Unknown]
  - Scoliosis [Unknown]
  - Peptic ulcer [Unknown]
  - Sciatica [Unknown]
  - Lumbar radiculopathy [Unknown]
  - Skin ulcer [Unknown]
  - Compression fracture [Unknown]
  - Lumbar spinal stenosis [Unknown]
  - Insomnia [Unknown]
  - Aortic arteriosclerosis [Unknown]
  - Intervertebral disc disorder [Unknown]
  - Bronchitis chronic [Not Recovered/Not Resolved]
  - Finger deformity [Unknown]
  - Device failure [Unknown]
  - Gastrooesophageal reflux disease [Unknown]
  - Blood calcium decreased [Unknown]
  - Gastrooesophageal reflux disease [Unknown]
